FAERS Safety Report 16018355 (Version 5)
Quarter: 2019Q3

REPORT INFORMATION
  Report Type: Spontaneous
  Country: US (occurrence: US)
  Receive Date: 20190228
  Receipt Date: 20190927
  Transmission Date: 20191004
  Serious: Yes (Other)
  Sender: FDA-Public Use
  Company Number: US-ASTRAZENECA-2018SF34721

PATIENT
  Age: 753 Month
  Sex: Male

DRUGS (22)
  1. PRILOSEC OTC [Suspect]
     Active Substance: OMEPRAZOLE MAGNESIUM
     Route: 048
  2. PREVACID 24 HR [Suspect]
     Active Substance: LANSOPRAZOLE
     Route: 065
  3. CARVEDILOL. [Concomitant]
     Active Substance: CARVEDILOL
  4. LYRICA [Concomitant]
     Active Substance: PREGABALIN
  5. SERTRALINE [Concomitant]
     Active Substance: SERTRALINE HYDROCHLORIDE
  6. NEXIUM 24HR [Suspect]
     Active Substance: ESOMEPRAZOLE MAGNESIUM
     Route: 048
  7. PRILOSEC [Suspect]
     Active Substance: OMEPRAZOLE MAGNESIUM
     Indication: GASTROOESOPHAGEAL REFLUX DISEASE
     Dosage: GENERIC
     Route: 048
     Dates: start: 20071226
  8. PROTONIX [Suspect]
     Active Substance: PANTOPRAZOLE SODIUM
     Dosage: GENERIC
     Route: 048
     Dates: start: 20161128
  9. CALCITRIOL. [Concomitant]
     Active Substance: CALCITRIOL
  10. PROTONIX [Suspect]
     Active Substance: PANTOPRAZOLE SODIUM
     Route: 065
     Dates: start: 20070101, end: 20180120
  11. ZANTAC 75 (OTC) [Concomitant]
  12. ASPIRIN. [Concomitant]
     Active Substance: ASPIRIN
  13. PREVACID [Suspect]
     Active Substance: LANSOPRAZOLE
     Route: 065
  14. PROTONIX [Suspect]
     Active Substance: PANTOPRAZOLE SODIUM
     Route: 065
     Dates: start: 20180129
  15. PRILOSEC [Suspect]
     Active Substance: OMEPRAZOLE MAGNESIUM
     Indication: GASTROOESOPHAGEAL REFLUX DISEASE
     Route: 048
     Dates: start: 20070101, end: 20180120
  16. PEPCID AC [Concomitant]
     Active Substance: FAMOTIDINE
  17. NEXIUM [Suspect]
     Active Substance: ESOMEPRAZOLE MAGNESIUM
     Indication: GASTROOESOPHAGEAL REFLUX DISEASE
     Route: 048
     Dates: start: 20070101, end: 20180120
  18. ATORVASTATIN [Concomitant]
     Active Substance: ATORVASTATIN
  19. ALPRAZOLAM. [Concomitant]
     Active Substance: ALPRAZOLAM
  20. AMIODARONE [Concomitant]
     Active Substance: AMIODARONE
  21. NIFEDIPINE. [Concomitant]
     Active Substance: NIFEDIPINE
  22. FUROSEMIDE. [Concomitant]
     Active Substance: FUROSEMIDE

REACTIONS (3)
  - Renal injury [Unknown]
  - End stage renal disease [Not Recovered/Not Resolved]
  - Chronic kidney disease [Not Recovered/Not Resolved]

NARRATIVE: CASE EVENT DATE: 201712
